FAERS Safety Report 10125933 (Version 3)
Quarter: 2014Q2

REPORT INFORMATION
  Report Type: Spontaneous
  Country: DE (occurrence: DE)
  Receive Date: 20140427
  Receipt Date: 20140512
  Transmission Date: 20141212
  Serious: Yes (Hospitalization)
  Sender: FDA-Public Use
  Company Number: PHHY2014DE027331

PATIENT
  Sex: Male
  Weight: 68 kg

DRUGS (7)
  1. AFINITOR [Suspect]
     Indication: METASTATIC RENAL CELL CARCINOMA
     Dosage: 5 MG, DAILY
     Dates: start: 20140317, end: 20140401
  2. AFINITOR [Suspect]
     Dosage: 10 MG, DAILY
     Dates: start: 20140402, end: 20140405
  3. PANTOZOL [Concomitant]
     Indication: GASTRIC DISORDER
     Dosage: 40 MG, QD
  4. L-THYROXIN [Concomitant]
     Dosage: 100 MG, QD
  5. CYMBALTA [Concomitant]
     Dosage: 30 MG, QD
  6. JURNISTA [Concomitant]
     Indication: PAIN
     Dosage: 8 MG, BID
  7. MCP [Concomitant]
     Indication: NAUSEA
     Dosage: 10 MG, QD

REACTIONS (4)
  - Subileus [Recovering/Resolving]
  - General physical health deterioration [Not Recovered/Not Resolved]
  - Oedema peripheral [Not Recovered/Not Resolved]
  - Migraine [Recovered/Resolved]
